FAERS Safety Report 21795630 (Version 1)
Quarter: 2022Q4

REPORT INFORMATION
  Report Type: Spontaneous
  Country: US (occurrence: None)
  Receive Date: 20221228
  Receipt Date: 20221228
  Transmission Date: 20230113
  Serious: Yes (Hospitalization)
  Sender: FDA-Public Use
  Company Number: None

PATIENT
  Age: 47 Year
  Sex: Female

DRUGS (1)
  1. LENALIDOMIDE [Suspect]
     Active Substance: LENALIDOMIDE
     Indication: Plasma cell myeloma
     Dosage: 25MG QD ORAL
     Route: 048
     Dates: start: 20220928

REACTIONS (5)
  - Femoral neck fracture [None]
  - Osteonecrosis [None]
  - Joint dislocation [None]
  - Constipation [None]
  - Deep vein thrombosis [None]

NARRATIVE: CASE EVENT DATE: 20221218
